FAERS Safety Report 26195619 (Version 1)
Quarter: 2025Q4

REPORT INFORMATION
  Report Type: Spontaneous
  Country: US (occurrence: US)
  Receive Date: 20251224
  Receipt Date: 20251224
  Transmission Date: 20260117
  Serious: No
  Sender: REDHILL BIOPHARMA
  Company Number: US-RDH-RDH202508-000014

PATIENT
  Age: 20 Year
  Sex: Female

DRUGS (1)
  1. TALICIA [Suspect]
     Active Substance: AMOXICILLIN\OMEPRAZOLE MAGNESIUM\RIFABUTIN
     Indication: Product used for unknown indication
     Route: 050

REACTIONS (1)
  - Tooth discolouration [Unknown]
